FAERS Safety Report 5235938-9 (Version None)
Quarter: 2007Q1

REPORT INFORMATION
  Report Type: 
  Country: None (occurrence: None)
  Receive Date: 20070212
  Receipt Date: 20070131
  Transmission Date: 20070707
  Serious: Yes (Hospitalization)
  Sender: FDA-Public Use
  Company Number: FR-GILEAD-2007-0011155

PATIENT
  Sex: Male
  Weight: 65 kg

DRUGS (5)
  1. TRUVADA [Suspect]
     Indication: HIV INFECTION
     Route: 048
     Dates: start: 20060513
  2. KALETRA [Suspect]
     Indication: HIV INFECTION
     Route: 048
     Dates: start: 20060523
  3. BACTRIM [Concomitant]
     Indication: PNEUMOCYSTIS JIROVECI PNEUMONIA
     Route: 048
     Dates: start: 20060425
  4. IMODIUM [Concomitant]
     Indication: DIARRHOEA
     Dates: start: 20060717
  5. LEDERFOLINE [Concomitant]
     Dates: start: 20060425

REACTIONS (2)
  - DELIRIUM [None]
  - PSYCHIATRIC SYMPTOM [None]
